FAERS Safety Report 4345414-3 (Version None)
Quarter: 2004Q2

REPORT INFORMATION
  Report Type: 
  Country: None (occurrence: None)
  Receive Date: 20040421
  Receipt Date: 20040413
  Transmission Date: 20050107
  Serious: Yes (Life-Threatening)
  Sender: FDA-Public Use
  Company Number: 04P-167-0257631

PATIENT
  Age: 44 Year
  Sex: Female
  Weight: 130 kg

DRUGS (8)
  1. MERIDIA [Suspect]
     Indication: OBESITY
     Dosage: 10 MG, 1 IN 1 D, PER ORAL
     Route: 048
     Dates: start: 20040309, end: 20040317
  2. PIOGLITAZONE HCL [Concomitant]
  3. RAMIPRIL [Concomitant]
  4. ATENOLOL [Concomitant]
  5. BENDROFLUMETHIAZIDE [Concomitant]
  6. LANSOPRAZOLE [Concomitant]
  7. GLICLAZIDE [Concomitant]
  8. METFORMIN HCL [Concomitant]

REACTIONS (2)
  - CORONARY ARTERY DISEASE [None]
  - TACHYCARDIA [None]
